FAERS Safety Report 10065395 (Version 5)
Quarter: 2014Q2

REPORT INFORMATION
  Report Type: Spontaneous
  Country: US (occurrence: US)
  Receive Date: 20140408
  Receipt Date: 20140618
  Transmission Date: 20141212
  Serious: Yes (Hospitalization)
  Sender: FDA-Public Use
  Company Number: US-GLAXOSMITHKLINE-A1068337A

PATIENT
  Age: 49 Year
  Sex: Female

DRUGS (3)
  1. FLOLAN [Suspect]
     Indication: PULMONARY ARTERIAL HYPERTENSION
     Dosage: 39NGKM CONTINUOUS
     Route: 042
     Dates: start: 20000421
  2. COUMADIN [Concomitant]
  3. TRACLEER [Concomitant]

REACTIONS (4)
  - Cholecystitis [Unknown]
  - Infusion site erythema [Unknown]
  - Investigation [Unknown]
  - Gallbladder operation [Unknown]
